FAERS Safety Report 23393860 (Version 1)
Quarter: 2024Q1

REPORT INFORMATION
  Report Type: Spontaneous
  Country: US (occurrence: US)
  Receive Date: 20240111
  Receipt Date: 20240111
  Transmission Date: 20240410
  Serious: No
  Sender: FDA-Public Use
  Company Number: US-PARI RESPIRATORY EQUIPMENT, INC.-2023PAR00021

PATIENT
  Sex: Male
  Weight: 77.098 kg

DRUGS (16)
  1. KITABIS PAK [Suspect]
     Active Substance: TOBRAMYCIN
     Indication: Respiratory tract malformation
     Dosage: 300 MG VIA NEBULIZER, 2X/DAY FOR 28 DAYS ON AND 28 DAYS OFF
     Dates: end: 2023
  2. KITABIS PAK [Suspect]
     Active Substance: TOBRAMYCIN
     Indication: Bronchiectasis
  3. KITABIS PAK [Suspect]
     Active Substance: TOBRAMYCIN
     Indication: Illness
  4. KITABIS PAK [Suspect]
     Active Substance: TOBRAMYCIN
     Indication: Infection
  5. KITABIS PAK [Suspect]
     Active Substance: TOBRAMYCIN
     Indication: Pseudomonas infection
  6. CAYSTON [Concomitant]
     Active Substance: AZTREONAM
  7. NEILMED SINUS RINSE [Concomitant]
     Active Substance: SODIUM BICARBONATE\SODIUM CHLORIDE
  8. MELATONIN [Concomitant]
     Active Substance: MELATONIN
  9. DULERA [Concomitant]
     Active Substance: FORMOTEROL FUMARATE DIHYDRATE\MOMETASONE FUROATE
  10. SINGULAIR [Concomitant]
     Active Substance: MONTELUKAST SODIUM
  11. VYVANSE [Concomitant]
     Active Substance: LISDEXAMFETAMINE DIMESYLATE
  12. SPIRIVA [Concomitant]
     Active Substance: TIOTROPIUM BROMIDE MONOHYDRATE
  13. AZELASTINE HYDROCHLORIDE [Concomitant]
     Active Substance: AZELASTINE HYDROCHLORIDE
  14. SODIUM CHLORIDE [Concomitant]
     Active Substance: SODIUM CHLORIDE
  15. ALBUTEROL SULFATE [Concomitant]
     Active Substance: ALBUTEROL SULFATE
  16. FLUTICASONE PROPIONATE [Concomitant]
     Active Substance: FLUTICASONE PROPIONATE

REACTIONS (3)
  - Illness [Unknown]
  - Unevaluable event [Not Recovered/Not Resolved]
  - Drug ineffective for unapproved indication [Recovered/Resolved]
